FAERS Safety Report 4332642-6 (Version None)
Quarter: 2004Q2

REPORT INFORMATION
  Report Type: 
  Country: None (occurrence: None)
  Receive Date: 20040401
  Receipt Date: 20040315
  Transmission Date: 20050107
  Serious: Yes (Hospitalization, Other)
  Sender: FDA-Public Use
  Company Number: 8005826

PATIENT
  Age: 41 Year
  Sex: Male

DRUGS (4)
  1. KEPPRA [Suspect]
     Dosage: 2/D
     Dates: start: 20031021
  2. LAMOTRIGINE [Suspect]
     Indication: EPILEPSY
     Dosage: 2/D PO
     Route: 048
     Dates: start: 19980101, end: 20040310
  3. TEGRETOL [Concomitant]
  4. LOCOID [Concomitant]

REACTIONS (3)
  - DERMATITIS EXFOLIATIVE [None]
  - DRUG INTERACTION [None]
  - RASH [None]
